FAERS Safety Report 10746207 (Version 1)
Quarter: 2015Q1

REPORT INFORMATION
  Report Type: Spontaneous
  Country: US (occurrence: US)
  Receive Date: 20150128
  Receipt Date: 20150128
  Transmission Date: 20150721
  Serious: No
  Sender: FDA-Public Use
  Company Number: US-GLAXOSMITHKLINE-US2015GSK010887

PATIENT
  Age: 58 Year
  Sex: Male
  Weight: 125.17 kg

DRUGS (1)
  1. VOTRIENT [Suspect]
     Active Substance: PAZOPANIB HYDROCHLORIDE
     Indication: MALIGNANT NEOPLASM OF RENAL PELVIS
     Dosage: 200 MG, QD
     Route: 048
     Dates: start: 20141116, end: 20150120

REACTIONS (3)
  - Neoplasm progression [Unknown]
  - Bone neoplasm [None]
  - Malignant neoplasm of renal pelvis [None]

NARRATIVE: CASE EVENT DATE: 20150120
